FAERS Safety Report 21571439 (Version 1)
Quarter: 2022Q4

REPORT INFORMATION
  Report Type: Spontaneous
  Country: JP (occurrence: JP)
  Receive Date: 20221109
  Receipt Date: 20221109
  Transmission Date: 20230113
  Serious: Yes (Other)
  Sender: FDA-Public Use
  Company Number: JP-002147023-NVSJ2022JP100556

PATIENT
  Age: 16 Year
  Sex: Male

DRUGS (11)
  1. ORGADRONE [Suspect]
     Active Substance: DEXAMETHASONE SODIUM PHOSPHATE
     Indication: Precursor T-lymphoblastic lymphoma/leukaemia
     Dosage: 3.3 MG/BODY, D8, 22, INDUCTION PHASE(0W0D)
     Route: 028
  2. ORGADRONE [Suspect]
     Active Substance: DEXAMETHASONE SODIUM PHOSPHATE
     Dosage: 3.3 MG/BODY, D1, 8, CONSOLIDATION PHASE(5W3D)
     Route: 028
  3. ORGADRONE [Suspect]
     Active Substance: DEXAMETHASONE SODIUM PHOSPHATE
     Dosage: 3.3 MG/BODY, D2, 9, SANCTUARY PHASE (10W1D)
     Route: 028
  4. METHOTREXATE [Suspect]
     Active Substance: METHOTREXATE
     Indication: Precursor T-lymphoblastic lymphoma/leukaemia
     Dosage: 15 MG/BODY, D8, 22, INDUCTION PHASE(0W0D)
     Route: 028
  5. METHOTREXATE [Suspect]
     Active Substance: METHOTREXATE
     Dosage: 15 MG/BODY, D1, 8, CONSOLIDATION PHASE(5W3D)
     Route: 028
  6. METHOTREXATE [Suspect]
     Active Substance: METHOTREXATE
     Dosage: 3000 MG/M2, D1, 8, SANCTUARY PHASE (10W1D)
     Route: 028
  7. METHOTREXATE [Suspect]
     Active Substance: METHOTREXATE
     Dosage: 15 MG/BODY, D2, 9, SANCTUARY PHASE (10W1D)
     Route: 028
  8. CYTARABINE [Suspect]
     Active Substance: CYTARABINE
     Indication: Precursor T-lymphoblastic lymphoma/leukaemia
     Dosage: 40 MG/BODY, D8, 22, INDUCTION PHASE(0W0D)
     Route: 028
  9. CYTARABINE [Suspect]
     Active Substance: CYTARABINE
     Dosage: 75 MG/M2, D1-6, 8-13, CONSOLIDATION PHASE (5W3D)
     Route: 028
  10. CYTARABINE [Suspect]
     Active Substance: CYTARABINE
     Dosage: 40 MG/BODY, D1, 8, CONSOLIDATION PHASE(5W3D)
     Route: 028
  11. CYTARABINE [Suspect]
     Active Substance: CYTARABINE
     Dosage: 40 MG/BODY, D2, 9, SANCTUARY PHASE (10W1D)
     Route: 028

REACTIONS (3)
  - Precursor T-lymphoblastic lymphoma/leukaemia [Recovered/Resolved]
  - Malignant neoplasm progression [Recovered/Resolved]
  - Off label use [Unknown]
